FAERS Safety Report 18106605 (Version 1)
Quarter: 2020Q3

REPORT INFORMATION
  Report Type: Report from Study
  Country: GT (occurrence: GT)
  Receive Date: 20200803
  Receipt Date: 20200803
  Transmission Date: 20201103
  Serious: Yes (Other)
  Sender: FDA-Public Use
  Company Number: NVSC2020GT214379

PATIENT
  Age: 56 Year
  Sex: Female

DRUGS (2)
  1. VYMADA [Suspect]
     Active Substance: SACUBITRIL\VALSARTAN
     Dosage: 200 MG
     Route: 065
     Dates: start: 202007
  2. VYMADA [Suspect]
     Active Substance: SACUBITRIL\VALSARTAN
     Indication: PRODUCT USED FOR UNKNOWN INDICATION
     Dosage: 100 MG
     Route: 065
     Dates: start: 201912, end: 202007

REACTIONS (6)
  - Cardiac disorder [Unknown]
  - Blood pressure abnormal [Unknown]
  - Lung disorder [Unknown]
  - Oxygen consumption decreased [Unknown]
  - Malaise [Unknown]
  - Fatigue [Unknown]
